FAERS Safety Report 12627845 (Version 1)
Quarter: 2016Q3

REPORT INFORMATION
  Report Type: Spontaneous
  Country: US (occurrence: US)
  Receive Date: 20160806
  Receipt Date: 20160806
  Transmission Date: 20161109
  Serious: Yes (Other)
  Sender: FDA-Public Use
  Company Number: US-BOIRON INC.-2016BOR00032

PATIENT
  Age: 29 Year
  Sex: Female
  Weight: 54.42 kg

DRUGS (4)
  1. VITAMIN D [Concomitant]
     Active Substance: CHOLECALCIFEROL
  2. BOIRON CALENDULA OINTMENT [Suspect]
     Active Substance: HOMEOPATHICS
     Indication: HAEMORRHOIDS
     Dosage: 1X/DAY AS NEEDED
     Route: 061
     Dates: start: 201606, end: 20160721
  3. BOIRON CALENDULA OINTMENT [Suspect]
     Active Substance: HOMEOPATHICS
     Indication: HAEMATOCHEZIA
  4. BOIRON CALENDULA CREAM [Suspect]
     Active Substance: HOMEOPATHICS
     Indication: LACERATION
     Dosage: ONCE
     Route: 061
     Dates: start: 20160721, end: 20160721

REACTIONS (4)
  - Hypersensitivity [Recovering/Resolving]
  - Erythema [Recovering/Resolving]
  - Seizure [Recovered/Resolved]
  - Swelling [Recovering/Resolving]

NARRATIVE: CASE EVENT DATE: 20160717
